FAERS Safety Report 10896634 (Version 3)
Quarter: 2019Q1

REPORT INFORMATION
  Report Type: Spontaneous
  Country: US (occurrence: US)
  Receive Date: 20150309
  Receipt Date: 20190312
  Transmission Date: 20190417
  Serious: No
  Sender: FDA-Public Use
  Company Number: US-ASTRAZENECA-2015SE21375

PATIENT
  Sex: Female

DRUGS (14)
  1. METFORMIN HYDROCHLORIDE. [Suspect]
     Active Substance: METFORMIN HYDROCHLORIDE
     Route: 065
  2. CITALOPRAM [Suspect]
     Active Substance: CITALOPRAM HYDROBROMIDE
     Route: 065
  3. LISINOPRIL. [Suspect]
     Active Substance: LISINOPRIL
     Route: 048
  4. TRAMADOL. [Suspect]
     Active Substance: TRAMADOL
     Route: 065
  5. TIZANIDINE. [Suspect]
     Active Substance: TIZANIDINE
     Route: 065
  6. FOLIC ACID. [Suspect]
     Active Substance: FOLIC ACID
     Route: 065
  7. HYDROCHLORIC ACID [Suspect]
     Active Substance: HYDROCHLORIC ACID
     Route: 065
  8. NAPROXEN. [Suspect]
     Active Substance: NAPROXEN
     Route: 065
  9. ACTOS [Suspect]
     Active Substance: PIOGLITAZONE HYDROCHLORIDE
     Route: 065
  10. NEXIUM [Suspect]
     Active Substance: ESOMEPRAZOLE MAGNESIUM
     Route: 048
  11. CELEBREX [Suspect]
     Active Substance: CELECOXIB
     Route: 065
  12. LANTUS [Suspect]
     Active Substance: INSULIN GLARGINE
     Route: 065
  13. MTX [Suspect]
     Active Substance: METHOTREXATE SODIUM
     Route: 065
  14. MICARDIS [Suspect]
     Active Substance: TELMISARTAN
     Route: 065

REACTIONS (1)
  - Drug hypersensitivity [Unknown]
